FAERS Safety Report 13592063 (Version 1)
Quarter: 2017Q2

REPORT INFORMATION
  Report Type: Other
  Country: US (occurrence: US)
  Receive Date: 20170529
  Receipt Date: 20170529
  Transmission Date: 20170830
  Serious: Yes (Hospitalization, Other)
  Sender: FDA-Public Use
  Company Number: US-THE PROACTIV LLC-2021327

PATIENT
  Sex: Female

DRUGS (9)
  1. PROACTIV PLUS COMPLEXION PERFECTING HYDRATOR [Suspect]
     Active Substance: SALICYLIC ACID
     Route: 061
     Dates: start: 20160401, end: 20170201
  2. IBUPROFEN. [Concomitant]
     Active Substance: IBUPROFEN
  3. SEROQUEL [Concomitant]
     Active Substance: QUETIAPINE FUMARATE
  4. PROACTIV PLUS SKIN PURIFYING MASK [Suspect]
     Active Substance: SULFUR
     Route: 061
     Dates: start: 20160401, end: 20170201
  5. PROACTIVPLUS SKIN SMOOTHING EXFOLIATOR [Suspect]
     Active Substance: BENZOYL PEROXIDE
     Indication: ACNE
     Route: 061
     Dates: start: 20160401, end: 20170201
  6. UNDISCLOSED HEART MEDICATIONS [Concomitant]
  7. AMBIEN [Concomitant]
     Active Substance: ZOLPIDEM TARTRATE
  8. PROACTIV PLUS PORE TARGETING TREATMENT [Suspect]
     Active Substance: BENZOYL PEROXIDE
     Route: 061
     Dates: start: 20160401, end: 20170201
  9. ZOLOFT [Concomitant]
     Active Substance: SERTRALINE HYDROCHLORIDE

REACTIONS (9)
  - Wound [Recovering/Resolving]
  - Skin burning sensation [None]
  - Wound infection staphylococcal [None]
  - Skin irritation [None]
  - Scab [None]
  - Anxiety [None]
  - Anaphylactic reaction [None]
  - Pain [None]
  - Pruritus [None]

NARRATIVE: CASE EVENT DATE: 20170201
